FAERS Safety Report 7096160-7 (Version None)
Quarter: 2010Q4

REPORT INFORMATION
  Report Type: 
  Country: None (occurrence: None)
  Receive Date: 20101111
  Receipt Date: 20101029
  Transmission Date: 20110411
  Serious: Yes (Death)
  Sender: FDA-Public Use
  Company Number: TW-ROCHE-737200

PATIENT
  Age: 87 Year
  Sex: Female

DRUGS (1)
  1. MIRCERA [Suspect]
     Dosage: ROUTE, FORM AND FREQUENCY NOT PROVIDED.
     Route: 065

REACTIONS (1)
  - DEATH [None]
